FAERS Safety Report 4756614-2 (Version None)
Quarter: 2005Q3

REPORT INFORMATION
  Report Type: 
  Country: None (occurrence: None)
  Receive Date: 20050830
  Receipt Date: 20050310
  Transmission Date: 20060218
  Serious: Yes (Hospitalization, Other)
  Sender: FDA-Public Use
  Company Number: US-MERCK-0503USA02280

PATIENT
  Age: 53 Year
  Sex: Female
  Weight: 98 kg

DRUGS (12)
  1. VIOXX [Suspect]
     Indication: MONARTHRITIS
     Route: 048
     Dates: start: 19990101, end: 20040101
  2. VIOXX [Suspect]
     Route: 048
     Dates: start: 20030901
  3. VIOXX [Suspect]
     Route: 048
     Dates: start: 20030929
  4. VICODIN [Concomitant]
     Route: 065
  5. PHENTERMINE [Concomitant]
     Route: 065
  6. ZOCOR [Concomitant]
     Route: 065
  7. NEXIUM [Concomitant]
     Route: 065
  8. LAMISIL [Concomitant]
     Route: 065
  9. NYSTATIN [Concomitant]
     Route: 065
  10. LOTREL [Concomitant]
     Route: 065
  11. FIORICET TABLETS [Concomitant]
     Route: 065
  12. ARTHROTEC [Concomitant]
     Route: 065

REACTIONS (47)
  - ADENOCARCINOMA [None]
  - ANAEMIA POSTOPERATIVE [None]
  - ARTHRALGIA [None]
  - ARTHRITIS [None]
  - ATELECTASIS [None]
  - ATHEROSCLEROSIS [None]
  - BACK PAIN [None]
  - BLOOD CHOLESTEROL INCREASED [None]
  - BLOOD TRIGLYCERIDES INCREASED [None]
  - CHEST DISCOMFORT [None]
  - CHEST PAIN [None]
  - CHRONIC OBSTRUCTIVE PULMONARY DISEASE [None]
  - CORONARY ARTERY ATHEROSCLEROSIS [None]
  - CORONARY ARTERY DISEASE [None]
  - CORONARY ARTERY STENOSIS [None]
  - CYST [None]
  - DIABETES MELLITUS [None]
  - DIAPHRAGMATIC DISORDER [None]
  - DILATATION ATRIAL [None]
  - DIZZINESS [None]
  - DYSPNOEA [None]
  - EMOTIONAL DISTRESS [None]
  - GAIT DISTURBANCE [None]
  - GASTRITIS [None]
  - HYPERSENSITIVITY [None]
  - HYPERTENSION [None]
  - HYPOAESTHESIA [None]
  - JOINT RANGE OF MOTION DECREASED [None]
  - LOW DENSITY LIPOPROTEIN INCREASED [None]
  - LUMBAR RADICULOPATHY [None]
  - MERALGIA PARAESTHETICA [None]
  - METASTATIC NEOPLASM [None]
  - MYOCARDIAL INFARCTION [None]
  - MYOCARDIAL ISCHAEMIA [None]
  - NAUSEA [None]
  - NERVE COMPRESSION [None]
  - OESOPHAGITIS [None]
  - PARAESTHESIA [None]
  - PEPTIC ULCER [None]
  - POST PROCEDURAL HAEMORRHAGE [None]
  - PULMONARY EMBOLISM [None]
  - SCAR [None]
  - STENT PLACEMENT [None]
  - THROMBOSIS [None]
  - TRANSIENT ISCHAEMIC ATTACK [None]
  - VENOUS THROMBOSIS LIMB [None]
  - VENTRICULAR HYPERTROPHY [None]
